FAERS Safety Report 21132322 (Version 1)
Quarter: 2022Q3

REPORT INFORMATION
  Report Type: Spontaneous
  Country: JP (occurrence: JP)
  Receive Date: 20220726
  Receipt Date: 20220726
  Transmission Date: 20221026
  Serious: Yes (Other)
  Sender: FDA-Public Use
  Company Number: JP-PFIZER INC-PV202200028073

PATIENT
  Sex: Male

DRUGS (1)
  1. XALATAN [Suspect]
     Active Substance: LATANOPROST
     Indication: Glaucoma
     Route: 031

REACTIONS (6)
  - Paralysis [Unknown]
  - Eye pain [Unknown]
  - Eyelid ptosis [Unknown]
  - Facial spasm [Unknown]
  - Muscle twitching [Unknown]
  - Product use issue [Unknown]
